FAERS Safety Report 8913974 (Version 1)
Quarter: 2012Q4

REPORT INFORMATION
  Report Type: 
  Country: IE (occurrence: IE)
  Receive Date: 20121116
  Receipt Date: 20121116
  Transmission Date: 20130627
  Serious: Yes (Other)
  Sender: FDA-Public Use
  Company Number: IE-ASTRAZENECA-2012SE85295

PATIENT
  Age: 14876 Day
  Sex: Male

DRUGS (2)
  1. MEROPENEM [Suspect]
     Indication: CYSTIC FIBROSIS
     Route: 041
     Dates: start: 20121023
  2. COLISTIMETHATE [Concomitant]

REACTIONS (1)
  - Malaise [Recovered/Resolved]
